FAERS Safety Report 6762281-9 (Version None)
Quarter: 2010Q2

REPORT INFORMATION
  Report Type: 
  Country: None (occurrence: None)
  Receive Date: 20100609
  Receipt Date: 20100608
  Transmission Date: 20101027
  Serious: Yes (Hospitalization)
  Sender: FDA-Public Use
  Company Number: US-ROXANE LABORATORIES, INC.-2008-BP-06694RO

PATIENT
  Sex: Male
  Weight: 85 kg

DRUGS (22)
  1. PREDNISONE [Suspect]
     Indication: DIFFUSE LARGE B-CELL LYMPHOMA
     Route: 048
     Dates: start: 20070516, end: 20070722
  2. PREDNISONE [Suspect]
     Route: 048
     Dates: start: 20070815, end: 20070905
  3. CYCLOPHOSPHAMIDE [Suspect]
     Indication: DIFFUSE LARGE B-CELL LYMPHOMA
     Route: 042
     Dates: start: 20070516, end: 20070718
  4. CYCLOPHOSPHAMIDE [Suspect]
     Route: 042
     Dates: start: 20070815, end: 20070905
  5. ENZASTAURIN [Suspect]
     Indication: DIFFUSE LARGE B-CELL LYMPHOMA
     Dosage: 1125 MG
     Route: 048
     Dates: start: 20070517, end: 20070517
  6. ENZASTAURIN [Suspect]
     Dosage: 500 MG
     Route: 048
     Dates: start: 20070518, end: 20070725
  7. ENZASTAURIN [Suspect]
     Dosage: 500 MG
     Route: 048
     Dates: start: 20070815, end: 20070905
  8. RITUXIMAB [Suspect]
     Indication: DIFFUSE LARGE B-CELL LYMPHOMA
     Route: 042
     Dates: start: 20070516, end: 20070718
  9. RITUXIMAB [Suspect]
     Route: 042
     Dates: start: 20070815, end: 20070905
  10. DOXORUBICIN HCL [Suspect]
     Indication: DIFFUSE LARGE B-CELL LYMPHOMA
     Route: 042
     Dates: start: 20070516, end: 20070718
  11. DOXORUBICIN HCL [Suspect]
     Route: 042
     Dates: start: 20070815, end: 20070905
  12. VINCRISTINE [Suspect]
     Indication: DIFFUSE LARGE B-CELL LYMPHOMA
     Route: 042
     Dates: start: 20070516, end: 20070718
  13. VINCRISTINE [Suspect]
     Route: 042
     Dates: start: 20070815, end: 20070905
  14. OMEPRAZOLE [Concomitant]
     Dates: start: 20070301
  15. FISH OIL [Concomitant]
     Dates: start: 20030101
  16. MULTI-VITAMIN [Concomitant]
     Dates: start: 20030101
  17. LYSINE [Concomitant]
     Dates: start: 20030101
  18. GINKO BILOBA [Concomitant]
     Dates: start: 20030101
  19. TRIFLEX [Concomitant]
     Dates: start: 20030101
  20. CALCIUM CARBONATE [Concomitant]
     Dates: start: 20030101
  21. BROMALINE [Concomitant]
     Dates: start: 20030101
  22. ASPIRIN [Concomitant]

REACTIONS (3)
  - MUCOSAL INFLAMMATION [None]
  - NEUTROPENIC SEPSIS [None]
  - PNEUMOCYSTIS JIROVECI PNEUMONIA [None]
